FAERS Safety Report 9132451 (Version 5)
Quarter: 2013Q3

REPORT INFORMATION
  Report Type: Report from Study
  Country: CA (occurrence: CA)
  Receive Date: 20130301
  Receipt Date: 20130801
  Transmission Date: 20140515
  Serious: Yes (Other)
  Sender: FDA-Public Use
  Company Number: CA-ROCHE-1177033

PATIENT
  Age: 74 Year
  Sex: Female
  Weight: 72 kg

DRUGS (4)
  1. ACTEMRA [Suspect]
     Indication: RHEUMATOID ARTHRITIS
     Route: 042
     Dates: start: 20120430
  2. FOLIC ACID [Concomitant]
  3. PREDNISONE [Concomitant]
  4. METHOTREXATE [Concomitant]

REACTIONS (7)
  - Pubis fracture [Not Recovered/Not Resolved]
  - Fall [Unknown]
  - Weight increased [Recovered/Resolved]
  - Blood pressure increased [Unknown]
  - Joint stiffness [Not Recovered/Not Resolved]
  - Joint range of motion decreased [Not Recovered/Not Resolved]
  - Arthralgia [Recovered/Resolved]
